FAERS Safety Report 15664551 (Version 4)
Quarter: 2019Q3

REPORT INFORMATION
  Report Type: Spontaneous
  Country: JP (occurrence: JP)
  Receive Date: 20181128
  Receipt Date: 20190704
  Transmission Date: 20191004
  Serious: Yes (Hospitalization, Other)
  Sender: FDA-Public Use
  Company Number: JP-009507513-1811JPN002727J

PATIENT
  Age: 70 Year
  Sex: Male

DRUGS (1)
  1. KEYTRUDA [Suspect]
     Active Substance: PEMBROLIZUMAB
     Indication: NON-SMALL CELL LUNG CANCER
     Dosage: UNK
     Route: 041

REACTIONS (16)
  - Altered state of consciousness [Recovering/Resolving]
  - Multiple organ dysfunction syndrome [Unknown]
  - Meningitis [Unknown]
  - Hepatic function abnormal [Unknown]
  - Vomiting [Unknown]
  - Encephalitis [Unknown]
  - Sepsis [Unknown]
  - Acute kidney injury [Unknown]
  - Disseminated intravascular coagulation [Unknown]
  - Pneumonia [Unknown]
  - Seizure [Unknown]
  - Respiratory failure [Unknown]
  - Tubulointerstitial nephritis [Unknown]
  - Malaise [Unknown]
  - Pulmonary alveolar haemorrhage [Unknown]
  - Pyrexia [Unknown]
